FAERS Safety Report 11984324 (Version 1)
Quarter: 2016Q1

REPORT INFORMATION
  Report Type: Spontaneous
  Country: US (occurrence: US)
  Receive Date: 20160201
  Receipt Date: 20160201
  Transmission Date: 20160526
  Serious: No
  Sender: FDA-Public Use
  Company Number: US-KADMON PHARMACEUTICALS, LLC-KAD201507-002448

PATIENT
  Sex: Female

DRUGS (3)
  1. RIBAVIRIN. [Suspect]
     Active Substance: RIBAVIRIN
     Indication: HEPATITIS C
     Dosage: TABLET
     Route: 048
     Dates: start: 2014
  2. SOVALDI [Suspect]
     Active Substance: SOFOSBUVIR
     Indication: HEPATITIS C
     Route: 048
     Dates: start: 2014
  3. CLIMARA [Concomitant]
     Active Substance: ESTRADIOL
     Indication: QUALITY OF LIFE DECREASED

REACTIONS (6)
  - Cystitis interstitial [Unknown]
  - Viral load increased [Unknown]
  - Treatment failure [Unknown]
  - Bladder pain [Unknown]
  - Malaise [Unknown]
  - Unevaluable event [Unknown]
